FAERS Safety Report 6527921-8 (Version None)
Quarter: 2010Q1

REPORT INFORMATION
  Report Type: 
  Country: None (occurrence: None)
  Receive Date: 20100106
  Receipt Date: 20090901
  Transmission Date: 20100710
  Serious: No
  Sender: FDA-Public Use
  Company Number: US-BAYER-200932383NA

PATIENT
  Age: 61 Year
  Sex: Female
  Weight: 82 kg

DRUGS (8)
  1. ULTRAVIST 150 [Suspect]
     Indication: COMPUTERISED TOMOGRAM THORAX
     Dosage: TOTAL DAILY DOSE: 100 ML  UNIT DOSE: 200 ML
     Route: 042
     Dates: start: 20090901, end: 20090901
  2. PREVACID [Concomitant]
  3. CELEBREX [Concomitant]
  4. ^PRACQUINAL^ [Concomitant]
  5. PREDNISONE [Concomitant]
     Indication: RHEUMATOID ARTHRITIS
     Dosage: INTERMITTENT RATE
     Route: 042
  6. PREDNISONE [Concomitant]
     Dosage: AS USED: 50 MG
     Dates: start: 20090831, end: 20090901
  7. BENADRYL [Concomitant]
     Dosage: AS USED: 50 MG
     Route: 048
     Dates: start: 20090901, end: 20090901
  8. ZYRTEC [Concomitant]

REACTIONS (1)
  - DYSPHAGIA [None]
